FAERS Safety Report 6051528-2 (Version None)
Quarter: 2009Q1

REPORT INFORMATION
  Report Type: 
  Country: None (occurrence: None)
  Receive Date: 20090126
  Receipt Date: 20090116
  Transmission Date: 20090719
  Serious: Yes (Hospitalization)
  Sender: FDA-Public Use
  Company Number: A0764964A

PATIENT
  Age: 34 Year
  Sex: Female
  Weight: 86.4 kg

DRUGS (1)
  1. AVANDAMET [Suspect]
     Route: 048
     Dates: start: 20070411, end: 20070821

REACTIONS (1)
  - CEREBROVASCULAR ACCIDENT [None]
